FAERS Safety Report 8405912-X (Version None)
Quarter: 2012Q1

REPORT INFORMATION
  Report Type: 
  Country: None (occurrence: None)
  Receive Date: 20120323
  Receipt Date: 20110718
  Transmission Date: 20120608
  Serious: Yes (Other)
  Sender: FDA-Public Use
  Company Number: 163-21880-11011034

PATIENT
  Age: 85 Year
  Sex: Female

DRUGS (7)
  1. XANAX [Concomitant]
  2. CIPRO [Concomitant]
  3. CALCIUM +D (OS-CAL) [Concomitant]
  4. REVLIMID [Suspect]
     Indication: MYELODYSPLASTIC SYNDROME
     Dosage: 5 MG, DAILY X 21 DAYS, OFF 7 DAYS, PO, 10 MG, DAILY X 21 DAYS, OFF 7 DAYS, PO
     Route: 048
     Dates: start: 20101014, end: 20101119
  5. REVLIMID [Suspect]
     Indication: MYELODYSPLASTIC SYNDROME
     Dosage: 5 MG, DAILY X 21 DAYS, OFF 7 DAYS, PO, 10 MG, DAILY X 21 DAYS, OFF 7 DAYS, PO
     Route: 048
     Dates: start: 20101119, end: 20110103
  6. FLAGYL [Concomitant]
  7. GLUCOSAMINE (GLUCOSAMINE) [Concomitant]

REACTIONS (1)
  - THROMBOCYTOPENIA [None]
